FAERS Safety Report 5662784-4 (Version None)
Quarter: 2008Q1

REPORT INFORMATION
  Report Type: 
  Country: None (occurrence: None)
  Receive Date: 20080311
  Receipt Date: 20080311
  Transmission Date: 20080703
  Serious: No
  Sender: FDA-Public Use
  Company Number: None

PATIENT
  Age: 55 Year
  Sex: Male
  Weight: 64.4108 kg

DRUGS (1)
  1. FENTANYL [Suspect]
     Dosage: 1 PATCH Q48HOURS TRANSDERMAL
     Route: 062
     Dates: start: 20080102, end: 20080131

REACTIONS (2)
  - DRUG INEFFECTIVE [None]
  - THERAPEUTIC RESPONSE UNEXPECTED WITH DRUG SUBSTITUTION [None]
